FAERS Safety Report 7973069-5 (Version None)
Quarter: 2011Q4

REPORT INFORMATION
  Report Type: 
  Country: None (occurrence: None)
  Receive Date: 20111209
  Receipt Date: 20111203
  Transmission Date: 20120403
  Serious: Yes (Hospitalization, Other)
  Sender: FDA-Public Use
  Company Number: ADR-2011-10520

PATIENT
  Age: 15 Year
  Sex: Female

DRUGS (2)
  1. LIORESAL [Suspect]
     Indication: CEREBRAL PALSY
     Dosage: UNK MCG; DAILY; INTRATH
     Route: 037
  2. LIORESAL [Suspect]
     Indication: MUSCLE SPASTICITY
     Dosage: UNK MCG; DAILY; INTRATH
     Route: 037

REACTIONS (4)
  - DEVICE LEAKAGE [None]
  - PSEUDOMENINGOCELE [None]
  - PRODUCT QUALITY ISSUE [None]
  - MEDICAL DEVICE COMPLICATION [None]
